FAERS Safety Report 13754049 (Version 1)
Quarter: 2017Q3

REPORT INFORMATION
  Report Type: Spontaneous
  Country: US (occurrence: US)
  Receive Date: 20170714
  Receipt Date: 20170714
  Transmission Date: 20171127
  Serious: Yes (Other)
  Sender: FDA-Public Use
  Company Number: None

PATIENT
  Age: 43 Year
  Sex: Male
  Weight: 78.75 kg

DRUGS (1)
  1. ZOLPIDEM TARTRATE 10MG [Suspect]
     Active Substance: ZOLPIDEM TARTRATE
     Indication: INSOMNIA
     Dosage: ?          OTHER STRENGTH:MG;QUANTITY:90 TABLET(S);?
     Route: 048
     Dates: start: 20170712

REACTIONS (4)
  - Drug ineffective [None]
  - Insomnia [None]
  - Abnormal dreams [None]
  - Product substitution issue [None]

NARRATIVE: CASE EVENT DATE: 20170713
